FAERS Safety Report 6175256-8 (Version None)
Quarter: 2009Q2

REPORT INFORMATION
  Report Type: 
  Country: None (occurrence: None)
  Receive Date: 20090430
  Receipt Date: 20090203
  Transmission Date: 20091009
  Serious: No
  Sender: FDA-Public Use
  Company Number: US-ASTRAZENECA-2009UW03039

PATIENT
  Age: 56 Year
  Sex: Male

DRUGS (5)
  1. NEXIUM [Suspect]
     Indication: OESOPHAGEAL ULCER
     Route: 048
  2. ATENOL [Concomitant]
  3. CRESTOR [Concomitant]
     Indication: HYPERCHOLESTEROLAEMIA
  4. LISINOPRIL [Concomitant]
     Indication: HYPERTENSION
  5. XALATAN [Concomitant]
     Indication: GLAUCOMA

REACTIONS (1)
  - GASTROOESOPHAGEAL REFLUX DISEASE [None]
